FAERS Safety Report 4661207-1 (Version None)
Quarter: 2005Q2

REPORT INFORMATION
  Report Type: 
  Country: None (occurrence: None)
  Receive Date: 20050513
  Receipt Date: 20050407
  Transmission Date: 20051028
  Serious: Yes (Death)
  Sender: FDA-Public Use
  Company Number: JP-BRISTOL-MYERS SQUIBB COMPANY-12926291

PATIENT
  Age: 40 Year
  Sex: Male

DRUGS (3)
  1. PARAPLATIN [Suspect]
     Indication: TESTICULAR NEOPLASM
  2. ETOPOSIDE [Suspect]
     Indication: TESTICULAR NEOPLASM
  3. IFOSFAMIDE [Suspect]
     Indication: TESTICULAR NEOPLASM

REACTIONS (5)
  - ANURIA [None]
  - PANCYTOPENIA [None]
  - PARALYSIS [None]
  - SEPSIS [None]
  - SPINAL CORD COMPRESSION [None]
